FAERS Safety Report 15704002 (Version 1)
Quarter: 2018Q4

REPORT INFORMATION
  Report Type: Spontaneous
  Country: US (occurrence: US)
  Receive Date: 20181210
  Receipt Date: 20181210
  Transmission Date: 20190205
  Serious: Yes (Death)
  Sender: FDA-Public Use
  Company Number: None

PATIENT
  Age: 27 Year
  Sex: Male

DRUGS (8)
  1. KRATOM [Suspect]
     Active Substance: MITRAGYNINE\HERBALS
  2. GUAIFENESIN. [Concomitant]
     Active Substance: GUAIFENESIN
  3. TRAMADOL. [Concomitant]
     Active Substance: TRAMADOL
  4. OXYCODONE [Concomitant]
     Active Substance: OXYCODONE
  5. TOPIRAMATE. [Concomitant]
     Active Substance: TOPIRAMATE
  6. PROMETHAZINE [Concomitant]
     Active Substance: PROMETHAZINE\PROMETHAZINE HYDROCHLORIDE
  7. DEXTROMETHORPHAN [Concomitant]
     Active Substance: DEXTROMETHORPHAN
  8. DIPHENHYDRAMINE. [Concomitant]
     Active Substance: DIPHENHYDRAMINE

REACTIONS (3)
  - Asphyxia [None]
  - Toxicity to various agents [None]
  - Accidental death [None]

NARRATIVE: CASE EVENT DATE: 20161108
